FAERS Safety Report 5374032-3 (Version None)
Quarter: 2007Q2

REPORT INFORMATION
  Report Type: 
  Country: None (occurrence: None)
  Receive Date: 20070627
  Receipt Date: 20070619
  Transmission Date: 20071010
  Serious: Yes (Hospitalization, Other)
  Sender: FDA-Public Use
  Company Number: 163-20785-07061049

PATIENT
  Age: 42 Year
  Sex: Female

DRUGS (5)
  1. THALOMID [Suspect]
     Indication: MULTIPLE MYELOMA
     Dosage: 200 MG, QHS, ORAL
     Route: 048
     Dates: start: 20061023
  2. LORTAB [Concomitant]
  3. BACTRIM [Concomitant]
  4. ST. JOHNS WORT (HYPERICUM PERFORATUM) [Concomitant]
  5. ASPIRIN [Concomitant]

REACTIONS (7)
  - ANAEMIA [None]
  - ATRIAL FIBRILLATION [None]
  - GASTROINTESTINAL HAEMORRHAGE [None]
  - LOBAR PNEUMONIA [None]
  - MALNUTRITION [None]
  - PERICARDIAL EFFUSION [None]
  - RENAL FAILURE ACUTE [None]
